FAERS Safety Report 10232710 (Version 1)
Quarter: 2014Q2

REPORT INFORMATION
  Report Type: Spontaneous
  Country: US (occurrence: None)
  Receive Date: 20140611
  Receipt Date: 20140611
  Transmission Date: 20141212
  Serious: No
  Sender: FDA-Public Use
  Company Number: None

PATIENT
  Age: 59 Year
  Sex: Female
  Weight: 60.33 kg

DRUGS (2)
  1. DULOXETINE DELAYED 60 MG ELI LILLY [Suspect]
     Indication: MENOPAUSE
     Route: 048
  2. DULOXETINE DELAYED 60 MG ELI LILLY [Suspect]
     Indication: DEPRESSION
     Route: 048

REACTIONS (2)
  - Pain [None]
  - Gait disturbance [None]
